FAERS Safety Report 5245468-6 (Version None)
Quarter: 2007Q1

REPORT INFORMATION
  Report Type: 
  Country: None (occurrence: None)
  Receive Date: 20070223
  Receipt Date: 20070215
  Transmission Date: 20070707
  Serious: Yes (Hospitalization, Other)
  Sender: FDA-Public Use
  Company Number: US-ELI_LILLY_AND_COMPANY-US_991131511

PATIENT
  Age: 77 Year
  Sex: Female
  Weight: 85.455 kg

DRUGS (9)
  1. HUMALOG [Suspect]
     Indication: DIABETES MELLITUS
     Dosage: 10 U, DAILY (1/D)
     Route: 058
     Dates: start: 20010801
  2. HUMULIN R [Suspect]
     Indication: DIABETES MELLITUS
     Dosage: 78 U, DAILY (1/D)
     Route: 058
     Dates: start: 19960101
  3. HUMULIN R [Suspect]
     Dosage: UNK, UNKNOWN
     Route: 058
     Dates: end: 20010701
  4. HUMULIN R [Suspect]
     Dosage: UNK, UNKNOWN
     Route: 058
     Dates: end: 20010701
  5. ZOCOR [Concomitant]
     Dosage: UNK, UNKNOWN
     Route: 048
  6. REZULIN [Concomitant]
     Indication: DIABETES MELLITUS
     Dosage: 400 MG, DAILY (1/D)
     Route: 048
  7. AVANDIA [Concomitant]
     Indication: DIABETES MELLITUS
     Dosage: UNK, UNKNOWN
     Route: 048
     Dates: end: 20010701
  8. CORTISONE ACETATE [Concomitant]
     Indication: SPINAL COLUMN STENOSIS
     Dosage: UNK, UNKNOWN
     Route: 008
  9. COUMADIN [Concomitant]

REACTIONS (18)
  - ARTHRALGIA [None]
  - ARTHROPATHY [None]
  - BACK PAIN [None]
  - BLOOD GLUCOSE DECREASED [None]
  - BLOOD GLUCOSE INCREASED [None]
  - BONE PAIN [None]
  - CATARACT [None]
  - DEVICE FAILURE [None]
  - DRUG EFFECT INCREASED [None]
  - DYSPNOEA [None]
  - FEELING ABNORMAL [None]
  - GAIT DISTURBANCE [None]
  - HAEMORRHAGE [None]
  - HYPOGLYCAEMIA [None]
  - JOINT DISLOCATION [None]
  - KNEE ARTHROPLASTY [None]
  - MUSCLE SPASMS [None]
  - SPINAL COLUMN STENOSIS [None]
